FAERS Safety Report 25771215 (Version 1)
Quarter: 2025Q3

REPORT INFORMATION
  Report Type: Spontaneous
  Country: US (occurrence: US)
  Receive Date: 20250908
  Receipt Date: 20250908
  Transmission Date: 20251021
  Serious: No
  Sender: DOMPE FARMACEUTICI
  Company Number: US-FARMAPROD-202504-1119

PATIENT
  Sex: Female
  Weight: 61.69 kg

DRUGS (9)
  1. OXERVATE [Suspect]
     Active Substance: CENEGERMIN-BKBJ
     Indication: Neurotrophic keratopathy
     Route: 047
     Dates: start: 20250310
  2. METOPROLOL SUCCINATE [Concomitant]
     Active Substance: METOPROLOL SUCCINATE
  3. GUAIFENESIN [Concomitant]
     Active Substance: GUAIFENESIN
  4. XIIDRA [Concomitant]
     Active Substance: LIFITEGRAST
     Indication: Dry eye
     Dates: start: 20241002
  5. LOSARTAN POTASSIUM [Concomitant]
     Active Substance: LOSARTAN POTASSIUM
  6. REFRESH OPTIVE ADVANCED [Concomitant]
     Active Substance: CARBOXYMETHYLCELLULOSE SODIUM\GLYCERIN\POLYSORBATE 80
  7. HUMIRA [Concomitant]
     Active Substance: ADALIMUMAB
  8. METOPROLOL SUCCINATE [Concomitant]
     Active Substance: METOPROLOL SUCCINATE
  9. PILOCARPINE HYDROCHLORIDE [Concomitant]
     Active Substance: PILOCARPINE HYDROCHLORIDE

REACTIONS (4)
  - Wrong technique in product usage process [Unknown]
  - Eye pain [Unknown]
  - Ocular discomfort [Unknown]
  - Eyelid pain [Recovering/Resolving]
